FAERS Safety Report 13377817 (Version 2)
Quarter: 2017Q1

REPORT INFORMATION
  Report Type: Spontaneous
  Country: IE (occurrence: IE)
  Receive Date: 20170328
  Receipt Date: 20170329
  Transmission Date: 20170429
  Serious: Yes (Other)
  Sender: FDA-Public Use
  Company Number: IE-PFIZER INC-2017128866

PATIENT
  Age: 27 Year
  Sex: Male

DRUGS (8)
  1. PREGABALIN. [Suspect]
     Active Substance: PREGABALIN
     Dosage: 100 MG, 2X/DAY
  2. PREGABALIN. [Suspect]
     Active Substance: PREGABALIN
     Indication: ANXIETY
     Dosage: 50 MG, 2X/DAY
  3. QUETIAPINE. [Concomitant]
     Active Substance: QUETIAPINE
     Indication: INSOMNIA
  4. PREGABALIN. [Suspect]
     Active Substance: PREGABALIN
     Dosage: 25 MG, 2X/DAY
  5. ESCITALOPRAM [Concomitant]
     Active Substance: ESCITALOPRAM OXALATE
     Indication: ANXIETY
     Dosage: 20 MG, MANE
  6. PREGABALIN. [Suspect]
     Active Substance: PREGABALIN
     Dosage: 50 MG, 2X/DAY
  7. QUETIAPINE. [Concomitant]
     Active Substance: QUETIAPINE
     Indication: ANXIETY
     Dosage: 300 MG, NOCTE
  8. ESCITALOPRAM [Concomitant]
     Active Substance: ESCITALOPRAM OXALATE
     Indication: INSOMNIA

REACTIONS (2)
  - Libido increased [Unknown]
  - Sexual activity increased [Recovering/Resolving]
